FAERS Safety Report 16202726 (Version 1)
Quarter: 2019Q2

REPORT INFORMATION
  Report Type: Spontaneous
  Country: US (occurrence: US)
  Receive Date: 20190416
  Receipt Date: 20190416
  Transmission Date: 20190711
  Serious: No
  Sender: FDA-Public Use
  Company Number: US-PFIZER INC-2019160789

PATIENT
  Age: 61 Year
  Sex: Female
  Weight: 72.88 kg

DRUGS (3)
  1. XELJANZ XR [Suspect]
     Active Substance: TOFACITINIB CITRATE
     Indication: RHEUMATOID ARTHRITIS
     Dosage: 11 MG, DAILY
     Route: 048
  2. PRIMIDONE. [Interacting]
     Active Substance: PRIMIDONE
     Indication: TREMOR
     Dosage: UNK
  3. XELJANZ XR [Interacting]
     Active Substance: TOFACITINIB CITRATE
     Dosage: 11 MG, DAILY
     Route: 048
     Dates: start: 201809

REACTIONS (2)
  - Drug interaction [Unknown]
  - Feeling abnormal [Unknown]
